FAERS Safety Report 8006994-X (Version None)
Quarter: 2011Q4

REPORT INFORMATION
  Report Type: 
  Country: None (occurrence: None)
  Receive Date: 20111227
  Receipt Date: 20111024
  Transmission Date: 20120403
  Serious: Yes (Hospitalization)
  Sender: FDA-Public Use
  Company Number: PHHY2011IT94885

PATIENT
  Age: 40 Year
  Sex: Male

DRUGS (9)
  1. CEFTRIAXONE [Concomitant]
     Dosage: 1 G, BID
     Route: 042
  2. GABEXATE [Concomitant]
     Dosage: 400 MG, UNK
     Route: 042
  3. SOMATOSTATIN [Concomitant]
     Dosage: 0.1 MG, TID
  4. OMEPRAZOLE [Concomitant]
     Dosage: 100 MG, UNK
     Route: 042
  5. OXCARBAZEPINE [Concomitant]
     Dosage: 1200 MG/ DAY
  6. CLOZAPINE [Suspect]
     Indication: SCHIZOAFFECTIVE DISORDER
     Dosage: 00 MG IN THE MORNING AND 175 MG AT BED TIME
  7. RISPERIDONE [Suspect]
     Dosage: 6 MG, BEDTIME
  8. VALPROATE BISMUTH [Concomitant]
     Dosage: 500 MG DAILY
  9. RISPERIDONE [Suspect]
     Dosage: 4 MG, PER DAY

REACTIONS (9)
  - GALLBLADDER ENLARGEMENT [None]
  - TACHYCARDIA [None]
  - ABDOMINAL PAIN [None]
  - SALIVARY HYPERSECRETION [None]
  - SCHIZOAFFECTIVE DISORDER [None]
  - GRANULOCYTOSIS [None]
  - PANCREATITIS [None]
  - CONSTIPATION [None]
  - ABDOMINAL DISTENSION [None]
